FAERS Safety Report 15531653 (Version 1)
Quarter: 2018Q4

REPORT INFORMATION
  Report Type: Spontaneous
  Country: US (occurrence: US)
  Receive Date: 20181019
  Receipt Date: 20181019
  Transmission Date: 20190205
  Serious: No
  Sender: FDA-Public Use
  Company Number: US-PFIZER INC-2018422195

PATIENT
  Age: 34 Year
  Sex: Male

DRUGS (1)
  1. XELJANZ [Suspect]
     Active Substance: TOFACITINIB CITRATE
     Indication: COLITIS ULCERATIVE
     Dosage: 5 MG, UNK
     Dates: start: 201809, end: 201810

REACTIONS (3)
  - Product dose omission [Unknown]
  - Nasal congestion [Unknown]
  - Headache [Unknown]

NARRATIVE: CASE EVENT DATE: 201809
